FAERS Safety Report 14239447 (Version 1)
Quarter: 2017Q4

REPORT INFORMATION
  Report Type: Spontaneous
  Country: IT (occurrence: IT)
  Receive Date: 20171130
  Receipt Date: 20171130
  Transmission Date: 20180321
  Serious: Yes (Death, Hospitalization, Other)
  Sender: FDA-Public Use
  Company Number: IT-MYLANLABS-2017M1074791

PATIENT
  Age: 91 Year
  Sex: Male
  Weight: 76 kg

DRUGS (2)
  1. PREDNISONE. [Suspect]
     Active Substance: PREDNISONE
     Indication: MYELODYSPLASTIC SYNDROME
     Dosage: 25 MG/DAY, CUTTING DOWN THE DOSAGE BY HALF EVERY WEEK
     Route: 065
  2. ERYTHROPOIETIN [Concomitant]
     Active Substance: ERYTHROPOIETIN
     Indication: MYELODYSPLASTIC SYNDROME
     Dosage: 40000 IU/WEEK
     Route: 058

REACTIONS (4)
  - Coma [Fatal]
  - Bacteraemia [Fatal]
  - Pleural effusion [Fatal]
  - Nocardiosis [Fatal]
